FAERS Safety Report 10400829 (Version 2)
Quarter: 2014Q3

REPORT INFORMATION
  Report Type: Spontaneous
  Country: US (occurrence: US)
  Receive Date: 20140821
  Receipt Date: 20140923
  Transmission Date: 20150326
  Serious: No
  Sender: FDA-Public Use
  Company Number: US-ASTRAZENECA-2014SE22178

PATIENT
  Age: 898 Month
  Sex: Female
  Weight: 61.7 kg

DRUGS (6)
  1. SYMBICORT [Suspect]
     Active Substance: BUDESONIDE\FORMOTEROL FUMARATE DIHYDRATE
     Indication: TOTAL LUNG CAPACITY DECREASED
     Dosage: 160/4.5, TWO PUFFS BID
     Route: 055
     Dates: start: 2009
  2. LEVOTHYROXINE [Concomitant]
     Active Substance: LEVOTHYROXINE
     Indication: THYROID DISORDER
     Route: 048
     Dates: start: 2001
  3. SYMBICORT [Suspect]
     Active Substance: BUDESONIDE\FORMOTEROL FUMARATE DIHYDRATE
     Indication: CHRONIC OBSTRUCTIVE PULMONARY DISEASE
     Dosage: 160/4.5, TWO PUFFS BID
     Route: 055
     Dates: start: 2009
  4. QUINAPRIL [Concomitant]
     Active Substance: QUINAPRIL\QUINAPRIL HYDROCHLORIDE
     Indication: BLOOD PRESSURE ABNORMAL
     Route: 048
     Dates: start: 2008
  5. ALLERGY SHOTS [Concomitant]
     Active Substance: UNSPECIFIED INGREDIENT
     Indication: MULTIPLE ALLERGIES
     Dosage: UNKNOWN MONTH
     Dates: start: 2009
  6. ATORVASTATIN [Concomitant]
     Active Substance: ATORVASTATIN
     Indication: BLOOD CHOLESTEROL ABNORMAL
     Route: 048
     Dates: start: 2013

REACTIONS (3)
  - Circumstance or information capable of leading to medication error [Not Recovered/Not Resolved]
  - Asthma [Unknown]
  - Device misuse [Unknown]

NARRATIVE: CASE EVENT DATE: 201403
